FAERS Safety Report 4929539-7 (Version None)
Quarter: 2006Q1

REPORT INFORMATION
  Report Type: 
  Country: None (occurrence: None)
  Receive Date: 20060224
  Receipt Date: 20060207
  Transmission Date: 20060701
  Serious: Yes (Hospitalization)
  Sender: FDA-Public Use
  Company Number: 222406

PATIENT
  Age: 48 Year
  Sex: Male

DRUGS (4)
  1. AVASTIN [Suspect]
     Indication: COLORECTAL CANCER
     Dosage: 7.5 MG/KG, Q3W, INTRAVENOUS
     Route: 042
     Dates: start: 20060131
  2. CAPECITABINE (CAPECITABINE) [Suspect]
     Indication: COLORECTAL CANCER
     Dosage: 1000 MG/M2, QD
     Dates: start: 20060131
  3. OXALIPLATIN (OXALIPLATIN) [Suspect]
     Indication: COLORECTAL CANCER
     Dosage: 130 MG/M2, Q3W, INTRAVENOUS
     Route: 042
     Dates: start: 20060131
  4. CETUXIMAB (CETUXIMAB) [Suspect]
     Indication: COLORECTAL CANCER
     Dosage: 400 MG/M2, Q3W, INTRAVENOUS
     Route: 042
     Dates: start: 20060131

REACTIONS (3)
  - ANGINA PECTORIS [None]
  - ARTERIOSPASM CORONARY [None]
  - PYREXIA [None]
